FAERS Safety Report 9918935 (Version 1)
Quarter: 2014Q1

REPORT INFORMATION
  Report Type: Spontaneous
  Country: US (occurrence: US)
  Receive Date: 20140224
  Receipt Date: 20140224
  Transmission Date: 20141002
  Serious: Yes (Other)
  Sender: FDA-Public Use
  Company Number: US-PFIZER INC-2014051415

PATIENT
  Sex: 0

DRUGS (2)
  1. ZOLOFT [Suspect]
     Indication: DEPRESSION
     Dosage: UNK
  2. ZOLOFT [Suspect]
     Dosage: 50 MG, UNK
     Dates: start: 201209

REACTIONS (1)
  - Depression [Unknown]
